FAERS Safety Report 8215372-X (Version None)
Quarter: 2012Q1

REPORT INFORMATION
  Report Type: 
  Country: None (occurrence: None)
  Receive Date: 20120316
  Receipt Date: 20120307
  Transmission Date: 20120608
  Serious: Yes (Hospitalization, Other)
  Sender: FDA-Public Use
  Company Number: US-AMGEN-USASP2012015114

PATIENT
  Age: 61 Year
  Sex: Female

DRUGS (5)
  1. PREDNISONE TAB [Concomitant]
     Dosage: UNK
  2. ENBREL [Suspect]
     Indication: RHEUMATOID ARTHRITIS
     Dosage: UNK
     Dates: start: 20050101, end: 20060101
  3. CELECOXIB [Concomitant]
     Dosage: UNK
  4. HUMIRA [Concomitant]
     Indication: RHEUMATOID ARTHRITIS
     Dosage: 40 MG, UNK (40 MG 1IN-2)
     Route: 058
     Dates: start: 20020101, end: 20040101
  5. ANAKINRA [Concomitant]
     Indication: RHEUMATOID ARTHRITIS
     Dosage: UNK
     Dates: start: 20040101, end: 20050101

REACTIONS (6)
  - DYSPNOEA [None]
  - COMA [None]
  - PNEUMONIA FUNGAL [None]
  - VOMITING [None]
  - PNEUMONIA [None]
  - PYREXIA [None]
